FAERS Safety Report 23295420 (Version 1)
Quarter: 2023Q4

REPORT INFORMATION
  Report Type: Spontaneous
  Country: US (occurrence: None)
  Receive Date: 20231213
  Receipt Date: 20231213
  Transmission Date: 20240110
  Serious: Yes (Other)
  Sender: FDA-Public Use
  Company Number: None

PATIENT
  Age: 72 Year
  Sex: Male

DRUGS (12)
  1. AMBRISENTAN [Suspect]
     Active Substance: AMBRISENTAN
     Indication: Pulmonary arterial hypertension
     Dosage: FREQUENCY : DAILY;?
     Route: 048
     Dates: start: 20220617
  2. TADALAFIL [Concomitant]
     Active Substance: TADALAFIL
  3. FUROSEMIDE [Concomitant]
     Active Substance: FUROSEMIDE
  4. POTASSIUM CHLORIDE [Concomitant]
     Active Substance: POTASSIUM CHLORIDE
  5. EPLERENONE [Concomitant]
     Active Substance: EPLERENONE
  6. MIDODRINE [Concomitant]
     Active Substance: MIDODRINE
  7. PANTOPRAZOLE [Concomitant]
     Active Substance: PANTOPRAZOLE
  8. SUCRALFATE [Concomitant]
     Active Substance: SUCRALFATE
  9. TRANEXAMIC ACID [Concomitant]
     Active Substance: TRANEXAMIC ACID
  10. ALBUTEROL SULFATE [Concomitant]
     Active Substance: ALBUTEROL SULFATE
  11. VITAMIN D3 [Concomitant]
     Active Substance: CHOLECALCIFEROL
  12. SENNOSIDES [Concomitant]
     Active Substance: SENNOSIDES

REACTIONS (1)
  - Epistaxis [None]

NARRATIVE: CASE EVENT DATE: 20231126
